FAERS Safety Report 7373803-1 (Version None)
Quarter: 2011Q1

REPORT INFORMATION
  Report Type: 
  Country: None (occurrence: None)
  Receive Date: 20110325
  Receipt Date: 20110321
  Transmission Date: 20110831
  Serious: No
  Sender: FDA-Public Use
  Company Number: US-PFIZER INC-2011062199

PATIENT
  Sex: Female

DRUGS (4)
  1. NIFEDIPINE [Suspect]
     Indication: HYPERTENSION
     Dosage: 60 MG, DAILY
     Route: 048
     Dates: start: 20100101
  2. OMEPRAZOLE [Concomitant]
     Dosage: UNK
  3. INDERAL [Concomitant]
     Dosage: UNK
  4. SPIRIVA [Concomitant]
     Dosage: UNK

REACTIONS (1)
  - ERUCTATION [None]
